FAERS Safety Report 9714097 (Version 2)
Quarter: 2015Q3

REPORT INFORMATION
  Report Type: Spontaneous
  Country: US (occurrence: US)
  Receive Date: 20131126
  Receipt Date: 20150803
  Transmission Date: 20151125
  Serious: No
  Sender: FDA-Public Use
  Company Number: US-GILEAD-2008-0018870

PATIENT
  Age: 52 Year
  Sex: Female
  Weight: 81.65 kg

DRUGS (10)
  1. ATENOLOL. [Concomitant]
     Active Substance: ATENOLOL
  2. FISH OIL [Concomitant]
     Active Substance: FISH OIL
  3. COENZYME [Concomitant]
     Active Substance: UBIDECARENONE
  4. HYDROCHLOROTHIAZIDE. [Concomitant]
     Active Substance: HYDROCHLOROTHIAZIDE
  5. L-ARGININE [Concomitant]
     Active Substance: ARGININE
  6. ASPIRIN. [Concomitant]
     Active Substance: ASPIRIN
  7. BUSPAR [Concomitant]
     Active Substance: BUSPIRONE HYDROCHLORIDE
  8. MULTIVITAMIN [Concomitant]
     Active Substance: VITAMINS
  9. LETAIRIS [Suspect]
     Active Substance: AMBRISENTAN
     Indication: PULMONARY ARTERIAL HYPERTENSION
     Route: 048
     Dates: start: 20080820
  10. ZOLOFT [Concomitant]
     Active Substance: SERTRALINE HYDROCHLORIDE

REACTIONS (2)
  - Unevaluable event [None]
  - Blood pressure decreased [None]
